FAERS Safety Report 19627878 (Version 4)
Quarter: 2021Q3

REPORT INFORMATION
  Report Type: Report from Study
  Country: CN (occurrence: CN)
  Receive Date: 20210729
  Receipt Date: 20210810
  Transmission Date: 20211014
  Serious: Yes (Death)
  Sender: FDA-Public Use
  Company Number: CN-EISAI MEDICAL RESEARCH-EC-2021-096931

PATIENT
  Age: 67 Year
  Sex: Male
  Weight: 49 kg

DRUGS (8)
  1. LENVATINIB [Suspect]
     Active Substance: LENVATINIB
     Indication: HEPATOCELLULAR CARCINOMA
     Route: 048
     Dates: start: 20191210, end: 20210708
  2. PLACEBO [Suspect]
     Active Substance: UNSPECIFIED INGREDIENT
     Indication: HEPATOCELLULAR CARCINOMA
     Route: 042
     Dates: start: 20191210, end: 20200211
  3. METFORMIN HYDROCHLORIDE. [Concomitant]
     Active Substance: METFORMIN HYDROCHLORIDE
     Dates: start: 201303
  4. HYDROCHLOROTHIAZIDE;TELMISARTAN [Concomitant]
     Active Substance: HYDROCHLOROTHIAZIDE\TELMISARTAN
     Dates: start: 201606
  5. AMLODIPINE BESILATE;ATORVASTATIN CALCIUM [Concomitant]
     Dates: start: 201606
  6. PANCREATIN [Concomitant]
     Active Substance: PANCRELIPASE
     Dates: start: 20200331
  7. PLACEBO [Suspect]
     Active Substance: UNSPECIFIED INGREDIENT
     Route: 042
     Dates: start: 20200305, end: 20200305
  8. PANCREATIC KININOGENASE [Concomitant]
     Active Substance: KALLIDINOGENASE
     Dates: start: 201303

REACTIONS (1)
  - Pneumonia [Fatal]

NARRATIVE: CASE EVENT DATE: 20210719
